FAERS Safety Report 5363621-8 (Version None)
Quarter: 2007Q2

REPORT INFORMATION
  Report Type: 
  Country: None (occurrence: None)
  Receive Date: 20070620
  Receipt Date: 20070612
  Transmission Date: 20071010
  Serious: Yes (Death, Hospitalization)
  Sender: FDA-Public Use
  Company Number: B0475925A

PATIENT
  Age: 72 Year
  Sex: Female

DRUGS (4)
  1. DIGOXIN [Suspect]
     Indication: DRUG USE FOR UNKNOWN INDICATION
  2. METOLAZONE [Suspect]
     Indication: DRUG USE FOR UNKNOWN INDICATION
  3. VERAPAMIL [Suspect]
     Indication: DRUG USE FOR UNKNOWN INDICATION
  4. WARFARIN SODIUM [Suspect]
     Indication: DRUG USE FOR UNKNOWN INDICATION

REACTIONS (14)
  - ARRHYTHMIA [None]
  - CARDIAC FAILURE CONGESTIVE [None]
  - CONFUSIONAL STATE [None]
  - DECREASED APPETITE [None]
  - DISTURBANCE IN ATTENTION [None]
  - HYPOVENTILATION [None]
  - INTERNATIONAL NORMALISED RATIO INCREASED [None]
  - NAUSEA [None]
  - RENAL FAILURE ACUTE [None]
  - SEPSIS [None]
  - THERAPEUTIC AGENT TOXICITY [None]
  - VENTRICULAR TACHYCARDIA [None]
  - VISUAL DISTURBANCE [None]
  - VOMITING [None]
